FAERS Safety Report 7023436-1 (Version None)
Quarter: 2010Q3

REPORT INFORMATION
  Report Type: 
  Country: None (occurrence: None)
  Receive Date: 20100930
  Receipt Date: 20100920
  Transmission Date: 20110219
  Serious: Yes (Other)
  Sender: FDA-Public Use
  Company Number: NL-WATSON-2010-12857

PATIENT
  Age: 87 Year
  Sex: Female

DRUGS (3)
  1. ATENOLOL/CHLORTHALIDONE UNKNOWN STRENGTH (WATSON LABORATORIES) [Suspect]
     Indication: HYPERTENSION
     Dosage: UNK
  2. NITROFURANTOIN [Suspect]
     Indication: BACTERIAL TEST POSITIVE
     Dosage: UNK
  3. LOSARTAN [Suspect]
     Indication: HYPERTENSION
     Dosage: 50 MG, BID

REACTIONS (14)
  - ABASIA [None]
  - ANXIETY [None]
  - BACK PAIN [None]
  - CONFUSIONAL STATE [None]
  - CONSTIPATION [None]
  - DRY MOUTH [None]
  - FATIGUE [None]
  - HYPOAESTHESIA [None]
  - HYPONATRAEMIA [None]
  - MALAISE [None]
  - MUSCULAR WEAKNESS [None]
  - NAUSEA [None]
  - URINARY INCONTINENCE [None]
  - URINE LEUKOCYTE ESTERASE POSITIVE [None]
